FAERS Safety Report 4518008-4 (Version None)
Quarter: 2004Q4

REPORT INFORMATION
  Report Type: 
  Country: None (occurrence: None)
  Receive Date: 20041130
  Receipt Date: 20041117
  Transmission Date: 20050328
  Serious: Yes (Other)
  Sender: FDA-Public Use
  Company Number: 2004055714

PATIENT
  Sex: Female

DRUGS (1)
  1. ZITHROMAX [Suspect]
     Indication: BRONCHITIS
     Dosage: 500 MG 250 MG, 2 IN 1 D, ORAL
     Route: 048
     Dates: start: 20040601, end: 20040601

REACTIONS (2)
  - ANOSMIA [None]
  - DYSGEUSIA [None]
